FAERS Safety Report 6024683-8 (Version None)
Quarter: 2008Q4

REPORT INFORMATION
  Report Type: 
  Country: None (occurrence: None)
  Receive Date: 20081230
  Receipt Date: 20081230
  Transmission Date: 20090506
  Serious: Yes (Other)
  Sender: FDA-Public Use
  Company Number: None

PATIENT
  Age: 31 Year
  Sex: Female
  Weight: 64.8644 kg

DRUGS (1)
  1. MIRENA [Suspect]
     Indication: CONTRACEPTION
     Dosage: 20MCG PER DAY DAILY INTRA-UTERINE CONTINUOUS FOR 5 YEARS
     Route: 015
     Dates: start: 20080709, end: 20081229

REACTIONS (1)
  - VAGINAL DISCHARGE [None]
